FAERS Safety Report 15455069 (Version 3)
Quarter: 2018Q4

REPORT INFORMATION
  Report Type: Spontaneous
  Country: LU (occurrence: LU)
  Receive Date: 20181002
  Receipt Date: 20181017
  Transmission Date: 20190204
  Serious: Yes (Hospitalization, Other)
  Sender: FDA-Public Use
  Company Number: LU-B.I. PHARMACEUTICALS,INC./RIDGEFIELD-2018-BI-048084

PATIENT
  Age: 68 Year
  Sex: Male

DRUGS (1)
  1. PRADAXA [Suspect]
     Active Substance: DABIGATRAN ETEXILATE MESYLATE
     Indication: ATRIAL FIBRILLATION
     Route: 065
     Dates: start: 2018, end: 2018

REACTIONS (2)
  - Thrombosis [Unknown]
  - Intracardiac thrombus [Unknown]

NARRATIVE: CASE EVENT DATE: 201809
